FAERS Safety Report 4691249-1 (Version None)
Quarter: 2005Q2

REPORT INFORMATION
  Report Type: 
  Country: None (occurrence: None)
  Receive Date: 20050614
  Receipt Date: 20050603
  Transmission Date: 20051028
  Serious: Yes (Death, Other)
  Sender: FDA-Public Use
  Company Number: 2005084286

PATIENT
  Age: 45 Year
  Sex: Male

DRUGS (2)
  1. LIPITOR [Suspect]
     Indication: ILL-DEFINED DISORDER
  2. PSYCHOANALEPTICS (PSYCHOANALEPTICS) [Concomitant]

REACTIONS (1)
  - RHABDOMYOLYSIS [None]
